FAERS Safety Report 6384716-6 (Version None)
Quarter: 2009Q3

REPORT INFORMATION
  Report Type: 
  Country: None (occurrence: None)
  Receive Date: 20090929
  Receipt Date: 20090915
  Transmission Date: 20100115
  Serious: Yes (Other)
  Sender: FDA-Public Use
  Company Number: B0594726A

PATIENT
  Sex: 0

DRUGS (2)
  1. TOPOTECAN HYDROCHLORIDE [Suspect]
     Indication: GLIOBLASTOMA MULTIFORME
     Dosage: INTRAVENOUS
     Route: 042
  2. RADIOTHERAPY (FORMULATION UNKNOWN) ( RADIOTHERAPY) [Suspect]
     Indication: GLIOBLASTOMA MULTIFORME

REACTIONS (1)
  - DRUG TOXICITY [None]
